FAERS Safety Report 10667642 (Version 10)
Quarter: 2016Q2

REPORT INFORMATION
  Report Type: Spontaneous
  Country: US (occurrence: US)
  Receive Date: 20141222
  Receipt Date: 20160427
  Transmission Date: 20160815
  Serious: Yes (Hospitalization, Congenital Anomaly, Other)
  Sender: FDA-Public Use
  Company Number: US-APOTEX-2014AP002963

PATIENT
  Age: 0 Day
  Sex: Female

DRUGS (3)
  1. PAXIL [Suspect]
     Active Substance: PAROXETINE HYDROCHLORIDE
     Indication: DEPRESSION
     Dosage: 20 MG, BID
     Route: 064
     Dates: end: 19970307
  2. PAXIL [Suspect]
     Active Substance: PAROXETINE HYDROCHLORIDE
     Indication: ANXIETY
  3. ZANTAC [Suspect]
     Active Substance: RANITIDINE HYDROCHLORIDE
     Indication: PRODUCT USED FOR UNKNOWN INDICATION
     Route: 064

REACTIONS (14)
  - Autism spectrum disorder [Unknown]
  - Heart disease congenital [Unknown]
  - Ingrowing nail [Unknown]
  - Foetal exposure during pregnancy [Unknown]
  - Hyperbilirubinaemia [Unknown]
  - Atrial septal defect [Unknown]
  - Spinal muscular atrophy [Unknown]
  - Congenital pneumonia [Unknown]
  - Autism spectrum disorder [Unknown]
  - Developmental hip dysplasia [Unknown]
  - Kyphosis congenital [Unknown]
  - Syncope [Unknown]
  - Congenital naevus [Unknown]
  - Electrocardiogram QT prolonged [Unknown]

NARRATIVE: CASE EVENT DATE: 19970307
